FAERS Safety Report 15808436 (Version 2)
Quarter: 2019Q1

REPORT INFORMATION
  Report Type: Spontaneous
  Country: US (occurrence: US)
  Receive Date: 20190110
  Receipt Date: 20190118
  Transmission Date: 20190417
  Serious: Yes (Other)
  Sender: FDA-Public Use
  Company Number: US-009507513-1901USA000115

PATIENT
  Age: 61 Year
  Sex: Female
  Weight: 59.9 kg

DRUGS (16)
  1. AMANTADINE. [Suspect]
     Active Substance: AMANTADINE HYDROCHLORIDE
     Dosage: 2 CAPSULES AT 9 OR 10PM/274MG, 1X/DAY AT BEDTIME
     Route: 048
     Dates: start: 20181213
  2. LEVODOPA [Concomitant]
     Active Substance: LEVODOPA
  3. VENLAFAXINE HYDROCHLORIDE. [Concomitant]
     Active Substance: VENLAFAXINE HYDROCHLORIDE
     Dosage: UNK,
     Dates: start: 20181210
  4. ALEVE [Concomitant]
     Active Substance: NAPROXEN SODIUM
     Dosage: AS NEEDED
  5. AMANTADINE. [Suspect]
     Active Substance: AMANTADINE HYDROCHLORIDE
     Indication: DYSKINESIA
     Dosage: 137 MILLIGRAM, 1X/DAY/AT BEDTIME
     Route: 048
     Dates: start: 20181115, end: 20181121
  6. TRAZODONE HYDROCHLORIDE. [Concomitant]
     Active Substance: TRAZODONE HYDROCHLORIDE
     Dosage: 100 MILLIGRAM, AT NIGHT
  7. SINEMET [Suspect]
     Active Substance: CARBIDOPA\LEVODOPA
     Dosage: 2 TABLETS, 5X/DAY
     Route: 048
  8. OMEGA-3 MARINE TRIGLYCERIDES [Concomitant]
     Active Substance: FISH OIL
  9. LEXAPRO [Concomitant]
     Active Substance: ESCITALOPRAM OXALATE
     Dosage: 5 MILLIGRAM
     Dates: start: 201812
  10. AMANTADINE. [Suspect]
     Active Substance: AMANTADINE HYDROCHLORIDE
     Dosage: 274 MG, 1X/DAY AT BEDTIME
     Route: 048
     Dates: start: 20181122, end: 201811
  11. CARBIDOPA. [Suspect]
     Active Substance: CARBIDOPA
  12. LEXAPRO [Concomitant]
     Active Substance: ESCITALOPRAM OXALATE
     Dosage: 10 MILLIGRAM
     Dates: start: 20181214
  13. ENTACAPONE. [Concomitant]
     Active Substance: ENTACAPONE
     Dosage: 200 MILLIGRAM, 5 TIMES PER DAY
  14. LEXAPRO [Concomitant]
     Active Substance: ESCITALOPRAM OXALATE
     Dosage: 20 MILLIGRAM
  15. AMANTADINE. [Suspect]
     Active Substance: AMANTADINE HYDROCHLORIDE
     Dosage: 1 CAPSULE DAILY/137MG, 1X/DAY AT BEDTIME
     Route: 048
     Dates: start: 201811, end: 20181203
  16. AMANTADINE. [Suspect]
     Active Substance: AMANTADINE HYDROCHLORIDE
     Dosage: 1 CAPSULE/137 MG, 1X/DAY AT BEDTIME
     Route: 048
     Dates: start: 20181206, end: 20181212

REACTIONS (13)
  - Muscular weakness [Unknown]
  - Dry mouth [Unknown]
  - Asthenia [Not Recovered/Not Resolved]
  - Feeling abnormal [Not Recovered/Not Resolved]
  - Tearfulness [Not Recovered/Not Resolved]
  - Negative thoughts [Unknown]
  - Thirst [Unknown]
  - Freezing phenomenon [Not Recovered/Not Resolved]
  - Depression [Unknown]
  - Muscle tightness [Unknown]
  - Overdose [Unknown]
  - Dyspnoea at rest [Not Recovered/Not Resolved]
  - Anxiety [Not Recovered/Not Resolved]

NARRATIVE: CASE EVENT DATE: 2018
